FAERS Safety Report 25856345 (Version 2)
Quarter: 2025Q4

REPORT INFORMATION
  Report Type: Spontaneous
  Country: US (occurrence: US)
  Receive Date: 20250928
  Receipt Date: 20251023
  Transmission Date: 20260117
  Serious: Yes (Other)
  Sender: BEIGENE
  Company Number: US-BEIGENE-BGN-2025-016510

PATIENT
  Age: 72 Year

DRUGS (7)
  1. BRUKINSA [Interacting]
     Active Substance: ZANUBRUTINIB
     Indication: Waldenstrom^s macroglobulinaemia
     Dosage: 80 MILLIGRAM, QD
  2. BRUKINSA [Interacting]
     Active Substance: ZANUBRUTINIB
     Dosage: 160 MILLIGRAM, QD
  3. BRUKINSA [Interacting]
     Active Substance: ZANUBRUTINIB
     Dosage: 160 MILLIGRAM, BID
  4. BRUKINSA [Interacting]
     Active Substance: ZANUBRUTINIB
     Dosage: TWO PILLS
  5. PREMPRO [Interacting]
     Active Substance: ESTROGENS, CONJUGATED\MEDROXYPROGESTERONE ACETATE
     Indication: Hormone replacement therapy
     Dosage: UNK
  6. ESTRIOL [Concomitant]
     Active Substance: ESTRIOL
     Dosage: 10 DAY INDUCTION PERIOD
  7. ESTRIOL [Concomitant]
     Active Substance: ESTRIOL
     Dosage: TWICE A WEEK

REACTIONS (4)
  - Postmenopausal haemorrhage [Not Recovered/Not Resolved]
  - Drug interaction [Unknown]
  - Drug ineffective [Unknown]
  - Incorrect dose administered [Unknown]
